FAERS Safety Report 5529951-1 (Version None)
Quarter: 2007Q4

REPORT INFORMATION
  Report Type: 
  Country: None (occurrence: None)
  Receive Date: 20071129
  Receipt Date: 20071120
  Transmission Date: 20080405
  Serious: Yes (Other)
  Sender: FDA-Public Use
  Company Number: AT-BOEHRINGER INGELHEIM PHARMACEUTICALS, INC.-2007-BE-00090BE

PATIENT
  Sex: Male
  Weight: 94 kg

DRUGS (4)
  1. ALNA RETARD 0,4MG KAPSELN [Suspect]
     Indication: BENIGN PROSTATIC HYPERPLASIA
     Route: 048
     Dates: start: 20070723, end: 20071113
  2. DIAMICRON [Concomitant]
     Dosage: 1X1
     Route: 048
  3. GLUCOPHAGE [Concomitant]
     Dosage: 1X1
     Route: 048
  4. TRITAZIDE [Concomitant]
     Dosage: 1X1
     Route: 048

REACTIONS (1)
  - OEDEMA PERIPHERAL [None]
